FAERS Safety Report 9385880 (Version 1)
Quarter: 2013Q3

REPORT INFORMATION
  Report Type: Spontaneous
  Country: US (occurrence: US)
  Receive Date: 20130705
  Receipt Date: 20130705
  Transmission Date: 20140515
  Serious: No
  Sender: FDA-Public Use
  Company Number: US-TEVA-416604USA

PATIENT
  Sex: Female
  Weight: 72.64 kg

DRUGS (1)
  1. QNASL [Suspect]
     Indication: NASAL CONGESTION
     Dates: start: 201306

REACTIONS (2)
  - Sneezing [Unknown]
  - Ear pain [Unknown]
